FAERS Safety Report 15879518 (Version 1)
Quarter: 2019Q1

REPORT INFORMATION
  Report Type: Spontaneous
  Country: US (occurrence: US)
  Receive Date: 20190127
  Receipt Date: 20190127
  Transmission Date: 20190417
  Serious: Yes (Life-Threatening, Hospitalization, Disabling, Other)
  Sender: FDA-Public Use
  Company Number: None

PATIENT
  Age: 78 Year
  Sex: Male
  Weight: 85.5 kg

DRUGS (5)
  1. AZELASTINE NASAL SPRAY .1% TWICE DAILY/NOSTRIL [Concomitant]
  2. MULTI VITAMINS [Concomitant]
     Active Substance: VITAMINS
  3. PRESERVISION 1X/DAY [Concomitant]
  4. THORAZINE [Suspect]
     Active Substance: CHLORPROMAZINE
     Indication: HICCUPS
     Dosage: ?          QUANTITY:1 CAPSULE(S);?
     Route: 048
     Dates: start: 20180805, end: 20181025
  5. COUMADIN 7.5MG 1X/DAY [Concomitant]

REACTIONS (15)
  - Hepatic failure [None]
  - Haemophagocytic lymphohistiocytosis [None]
  - Malignant melanoma [None]
  - Mental status changes [None]
  - Sepsis [None]
  - Tremor [None]
  - Haemorrhage [None]
  - Anaesthetic complication [None]
  - Hepatic lesion [None]
  - Diffuse large B-cell lymphoma [None]
  - Hallucination [None]
  - Hepatitis [None]
  - Self-medication [None]
  - Drug-induced liver injury [None]
  - B-cell lymphoma [None]

NARRATIVE: CASE EVENT DATE: 20181018
